FAERS Safety Report 4340836-9 (Version None)
Quarter: 2004Q2

REPORT INFORMATION
  Report Type: 
  Country: None (occurrence: None)
  Receive Date: 20040419
  Receipt Date: 20040114
  Transmission Date: 20050107
  Serious: No
  Sender: FDA-Public Use
  Company Number: US-GLAXOSMITHKLINE-A0493269A

PATIENT
  Age: 46 Year
  Sex: Male

DRUGS (7)
  1. ESKALITH [Suspect]
     Dosage: 225MG PER DAY
     Route: 048
  2. LAMICTAL [Suspect]
     Indication: BIPOLAR DISORDER
     Dosage: 125MG PER DAY
     Route: 048
     Dates: start: 20040105
  3. ZYPREXA [Suspect]
     Indication: DRUG USE FOR UNKNOWN INDICATION
     Dates: start: 20040101, end: 20040309
  4. VALIUM [Concomitant]
  5. SEIZURE MEDICATION [Concomitant]
     Route: 065
  6. GABAPENTIN [Concomitant]
  7. GABITRIL [Concomitant]

REACTIONS (9)
  - BLOOD CREATININE INCREASED [None]
  - CONFUSIONAL STATE [None]
  - DIZZINESS [None]
  - ERECTILE DYSFUNCTION [None]
  - EXTRAPYRAMIDAL DISORDER [None]
  - FATIGUE [None]
  - INSOMNIA [None]
  - RENAL DISORDER [None]
  - SEXUAL DYSFUNCTION [None]
